FAERS Safety Report 23580286 (Version 1)
Quarter: 2024Q1

REPORT INFORMATION
  Report Type: Spontaneous
  Country: NO (occurrence: NO)
  Receive Date: 20240229
  Receipt Date: 20240229
  Transmission Date: 20240410
  Serious: Yes (Other)
  Sender: FDA-Public Use
  Company Number: NO-Hill Dermaceuticals, Inc.-2153853

PATIENT

DRUGS (1)
  1. TOLAK [Suspect]
     Active Substance: FLUOROURACIL
     Route: 061

REACTIONS (5)
  - Basal cell carcinoma [Unknown]
  - Insomnia [Not Recovered/Not Resolved]
  - Nausea [Not Recovered/Not Resolved]
  - Vomiting [Recovered/Resolved]
  - Rash papular [Recovered/Resolved]
